FAERS Safety Report 12642482 (Version 3)
Quarter: 2016Q3

REPORT INFORMATION
  Report Type: Spontaneous
  Country: CN (occurrence: CN)
  Receive Date: 20160810
  Receipt Date: 20160920
  Transmission Date: 20161109
  Serious: Yes (Hospitalization)
  Sender: FDA-Public Use
  Company Number: CN-ALLERGAN-1665130US

PATIENT
  Age: 31 Year
  Sex: Female

DRUGS (5)
  1. BOTOX [Suspect]
     Active Substance: ONABOTULINUMTOXINA
     Dosage: 10 UNITS, SINGLE
     Route: 030
     Dates: start: 20160802, end: 20160802
  2. BOTOX [Suspect]
     Active Substance: ONABOTULINUMTOXINA
     Dosage: 10 UNITS, SINGLE
     Route: 030
     Dates: start: 20160802, end: 20160802
  3. RESTYLANE [Concomitant]
     Active Substance: HYALURONIC ACID
     Indication: PRODUCT USED FOR UNKNOWN INDICATION
     Dosage: 1 UNK, UNK
     Dates: start: 20160804, end: 20160804
  4. BOTOX [Suspect]
     Active Substance: ONABOTULINUMTOXINA
     Indication: FACE LIFT
     Dosage: 40 UNITS, SINGLE
     Route: 030
     Dates: start: 20160802, end: 20160802
  5. BOTOX [Suspect]
     Active Substance: ONABOTULINUMTOXINA
     Indication: FACE LIFT
     Dosage: 40 UNITS, SINGLE
     Route: 030
     Dates: start: 20160802, end: 20160802

REACTIONS (5)
  - Botulism [Recovering/Resolving]
  - Asthenia [Recovering/Resolving]
  - Anxiety [Recovering/Resolving]
  - Off label use [Unknown]
  - Dysuria [Recovering/Resolving]

NARRATIVE: CASE EVENT DATE: 20160804
